FAERS Safety Report 5748497-9 (Version None)
Quarter: 2008Q2

REPORT INFORMATION
  Report Type: 
  Country: None (occurrence: None)
  Receive Date: 20080523
  Receipt Date: 20080512
  Transmission Date: 20081010
  Serious: Yes (Other)
  Sender: FDA-Public Use
  Company Number: US-PFIZER INC-2008041788

PATIENT
  Sex: Female

DRUGS (2)
  1. NEURONTIN [Suspect]
  2. LYRICA [Suspect]

REACTIONS (8)
  - ASTHENIA [None]
  - CHEST PAIN [None]
  - HYPERTENSION [None]
  - LYMPHOEDEMA [None]
  - OEDEMA PERIPHERAL [None]
  - PAIN IN EXTREMITY [None]
  - PYREXIA [None]
  - WEIGHT INCREASED [None]
